FAERS Safety Report 6535059-9 (Version None)
Quarter: 2010Q1

REPORT INFORMATION
  Report Type: 
  Country: None (occurrence: None)
  Receive Date: 20100111
  Receipt Date: 20100111
  Transmission Date: 20100710
  Serious: Yes (Life-Threatening)
  Sender: FDA-Public Use
  Company Number: None

PATIENT
  Sex: Female
  Weight: 90.7194 kg

DRUGS (2)
  1. VIMPAT [Suspect]
     Indication: PARTIAL SEIZURES
     Dosage: 100 MG 2/DAY PO
     Route: 048
     Dates: start: 20100108, end: 20100108
  2. TRANXENE [Concomitant]

REACTIONS (13)
  - APATHY [None]
  - CHEST DISCOMFORT [None]
  - CRYING [None]
  - DEPRESSION [None]
  - DIZZINESS [None]
  - EUPHORIC MOOD [None]
  - HEART RATE DECREASED [None]
  - HEART RATE IRREGULAR [None]
  - INAPPROPRIATE AFFECT [None]
  - LETHARGY [None]
  - PULSE PRESSURE DECREASED [None]
  - SOMNOLENCE [None]
  - SUICIDAL IDEATION [None]
